FAERS Safety Report 5741052-6 (Version None)
Quarter: 2008Q2

REPORT INFORMATION
  Report Type: 
  Country: None (occurrence: None)
  Receive Date: 20080514
  Receipt Date: 20080429
  Transmission Date: 20081010
  Serious: Yes (Hospitalization, Other)
  Sender: FDA-Public Use
  Company Number: ENC200800093

PATIENT
  Age: 80 Year
  Sex: Female

DRUGS (3)
  1. ARGATROBAN [Suspect]
     Indication: HEPARIN-INDUCED THROMBOCYTOPENIA
     Dosage: 2MG/KG,
     Dates: start: 20080401, end: 20080401
  2. HEPARIN [Concomitant]
  3. COUMADIN [Concomitant]

REACTIONS (2)
  - HAEMORRHAGIC STROKE [None]
  - PULMONARY EMBOLISM [None]
